FAERS Safety Report 7956769-2 (Version None)
Quarter: 2011Q4

REPORT INFORMATION
  Report Type: 
  Country: None (occurrence: None)
  Receive Date: 20111205
  Receipt Date: 20111128
  Transmission Date: 20120403
  Serious: Yes (Hospitalization)
  Sender: FDA-Public Use
  Company Number: US-SHIRE-ALL1-2011-04651

PATIENT
  Sex: Female
  Weight: 49.887 kg

DRUGS (2)
  1. PENTASA [Suspect]
     Indication: CROHN'S DISEASE
     Dosage: 1000 MG, 3X/DAY:TID (TWO 500 MG TABLETS)
     Route: 048
     Dates: start: 20111001, end: 20110101
  2. IRON [Concomitant]
     Indication: SUPPLEMENTATION THERAPY
     Dosage: UNK UNK, 1X/DAY:QD
     Route: 048

REACTIONS (4)
  - INSOMNIA [None]
  - HEART RATE IRREGULAR [None]
  - CHEST PAIN [None]
  - OFF LABEL USE [None]
